FAERS Safety Report 8464845-3 (Version None)
Quarter: 2012Q2

REPORT INFORMATION
  Report Type: 
  Country: None (occurrence: None)
  Receive Date: 20120626
  Receipt Date: 20120614
  Transmission Date: 20120825
  Serious: Yes (Other)
  Sender: FDA-Public Use
  Company Number: US-SANOFI-AVENTIS-2012SA042942

PATIENT
  Age: 53 Year
  Sex: Female

DRUGS (2)
  1. LANTUS [Suspect]
     Route: 058
     Dates: start: 20080101
  2. APIDRA [Suspect]
     Route: 058
     Dates: start: 20080101

REACTIONS (3)
  - LIVER DISORDER [None]
  - PANCREATIC DISORDER [None]
  - GALLBLADDER DISORDER [None]
